FAERS Safety Report 10857871 (Version 3)
Quarter: 2015Q2

REPORT INFORMATION
  Report Type: Spontaneous
  Country: US (occurrence: US)
  Receive Date: 20150223
  Receipt Date: 20150615
  Transmission Date: 20150821
  Serious: Yes (Other)
  Sender: FDA-Public Use
  Company Number: US-JAZZ-2013-US-000841

PATIENT
  Age: 57 Year
  Sex: Female
  Weight: 70.3 kg

DRUGS (21)
  1. LYRICA [Concomitant]
     Active Substance: PREGABALIN
     Indication: PRODUCT USED FOR UNKNOWN INDICATION
  2. PRIMIDONE. [Concomitant]
     Active Substance: PRIMIDONE
     Indication: ESSENTIAL TREMOR
     Dosage: 250 MG, QD
     Route: 048
  3. MELATONIN [Concomitant]
     Active Substance: MELATONIN
     Indication: SLEEP DISORDER
     Dosage: UNK
     Route: 048
  4. XYREM [Suspect]
     Active Substance: SODIUM OXYBATE
     Dosage: 2.25 G, BID
     Route: 048
     Dates: start: 201406, end: 2014
  5. MAGNESIUM [Concomitant]
     Active Substance: MAGNESIUM
     Indication: NUTRITIONAL SUPPLEMENTATION
     Dosage: UNK
     Route: 048
  6. XYREM [Suspect]
     Active Substance: SODIUM OXYBATE
     Indication: NARCOLEPSY
     Dosage: 1.5 G, BID
     Route: 048
     Dates: start: 200710
  7. XYREM [Suspect]
     Active Substance: SODIUM OXYBATE
     Dosage: 4.5 G, FIRST DOSE
     Route: 048
     Dates: start: 201307, end: 201310
  8. XYREM [Suspect]
     Active Substance: SODIUM OXYBATE
     Dosage: DOSE ADJUSTMENTS
     Route: 048
     Dates: start: 2014, end: 2014
  9. XYREM [Suspect]
     Active Substance: SODIUM OXYBATE
     Dosage: 5 G, BID
     Route: 048
     Dates: start: 201410
  10. REGLAN [Concomitant]
     Active Substance: METOCLOPRAMIDE HYDROCHLORIDE
     Indication: GASTROOESOPHAGEAL REFLUX DISEASE
     Dosage: 5 MG, QID
     Route: 048
  11. MAXALT [Concomitant]
     Active Substance: RIZATRIPTAN BENZOATE
     Indication: MIGRAINE
     Dosage: UNK, PRN
     Route: 048
  12. ZYRTEC-D [Concomitant]
     Active Substance: CETIRIZINE HYDROCHLORIDE\PSEUDOEPHEDRINE HYDROCHLORIDE
     Indication: HYPERSENSITIVITY
     Dosage: UNK, PRN
     Route: 048
  13. XYREM [Suspect]
     Active Substance: SODIUM OXYBATE
     Indication: SOMNOLENCE
     Dosage: DOSE ADJUSTMENTS
     Route: 048
  14. NEXIUM [Concomitant]
     Active Substance: ESOMEPRAZOLE MAGNESIUM
     Indication: GASTROOESOPHAGEAL REFLUX DISEASE
     Dosage: 40 MG, BID
     Route: 048
  15. XYREM [Suspect]
     Active Substance: SODIUM OXYBATE
     Dosage: 4.5 G, SECOND DOSE
     Route: 048
     Dates: start: 201307, end: 201310
  16. INDERAL LONG ACTING [Concomitant]
     Indication: MIGRAINE
     Dosage: 120 MG, QD
     Route: 048
  17. POTASSIUM [Concomitant]
     Active Substance: POTASSIUM
     Indication: PROPHYLAXIS
     Dosage: 20 MEQ, QD
     Route: 048
  18. TYLENOL [Concomitant]
     Active Substance: ACETAMINOPHEN
     Indication: PRODUCT USED FOR UNKNOWN INDICATION
     Dosage: UNK, PRN
     Route: 048
  19. XYREM [Suspect]
     Active Substance: SODIUM OXYBATE
     Dosage: 3 G, THIRD DOSE
     Route: 048
     Dates: start: 201307, end: 201310
  20. LASIX [Concomitant]
     Active Substance: FUROSEMIDE
     Indication: OEDEMA PERIPHERAL
     Dosage: 20 MG, QD
     Route: 048
  21. IBUPROFEN. [Concomitant]
     Active Substance: IBUPROFEN
     Indication: PRODUCT USED FOR UNKNOWN INDICATION
     Dosage: UNK, PRN
     Route: 048

REACTIONS (37)
  - Breast lump removal [Recovered/Resolved]
  - Laryngeal disorder [Not Recovered/Not Resolved]
  - Insomnia [Not Recovered/Not Resolved]
  - Musculoskeletal pain [Not Recovered/Not Resolved]
  - Constipation [Not Recovered/Not Resolved]
  - Seizure [Not Recovered/Not Resolved]
  - Chemotherapy neurotoxicity attenuation [Not Recovered/Not Resolved]
  - Unevaluable event [Not Recovered/Not Resolved]
  - Disturbance in attention [Not Recovered/Not Resolved]
  - Tremor [Not Recovered/Not Resolved]
  - Breast cancer stage I [Recovering/Resolving]
  - Arrhythmia [Not Recovered/Not Resolved]
  - Palpitations [Not Recovered/Not Resolved]
  - Blood pressure increased [Recovered/Resolved]
  - Fatigue [Not Recovered/Not Resolved]
  - Migraine [Recovered/Resolved]
  - Hot flush [Not Recovered/Not Resolved]
  - Sinusitis [Not Recovered/Not Resolved]
  - Somnambulism [Recovering/Resolving]
  - Hypnagogic hallucination [Not Recovered/Not Resolved]
  - Weight increased [Not Recovered/Not Resolved]
  - Tendon operation [Recovering/Resolving]
  - Diplopia [Not Recovered/Not Resolved]
  - Skin exfoliation [Recovered/Resolved]
  - Blood pressure fluctuation [Not Recovered/Not Resolved]
  - Abnormal dreams [Not Recovered/Not Resolved]
  - Tendon injury [Recovering/Resolving]
  - Face injury [Recovering/Resolving]
  - Dysphagia [Not Recovered/Not Resolved]
  - Pharyngeal disorder [Not Recovered/Not Resolved]
  - Fall [Recovered/Resolved]
  - Fluid retention [Not Recovered/Not Resolved]
  - Weight decreased [Recovered/Resolved]
  - Choking [Not Recovered/Not Resolved]
  - Gastrooesophageal reflux disease [Recovered/Resolved]
  - Alopecia [Not Recovered/Not Resolved]
  - Amnesia [Recovering/Resolving]

NARRATIVE: CASE EVENT DATE: 201106
